FAERS Safety Report 10680160 (Version 3)
Quarter: 2015Q1

REPORT INFORMATION
  Report Type: Spontaneous
  Country: IT (occurrence: IT)
  Receive Date: 20141229
  Receipt Date: 20150303
  Transmission Date: 20150720
  Serious: Yes (Other)
  Sender: FDA-Public Use
  Company Number: PHHY2014IT166920

PATIENT
  Sex: Female

DRUGS (7)
  1. NIMESULIDE [Suspect]
     Active Substance: NIMESULIDE
     Indication: INTENTIONAL SELF-INJURY
     Dosage: 23 DF, ONCE/SINGLE
     Route: 048
     Dates: start: 20141113, end: 20141113
  2. CETIRIZINE [Suspect]
     Active Substance: CETIRIZINE HYDROCHLORIDE
     Indication: INTENTIONAL SELF-INJURY
     Dosage: 15 DF, ONCE/SINGLE
     Route: 048
     Dates: start: 20141113, end: 20141113
  3. DISSENTEN [Suspect]
     Active Substance: LOPERAMIDE HYDROCHLORIDE
     Indication: INTENTIONAL SELF-INJURY
     Dosage: 12 DF, ONCE/SINGLE
     Route: 048
     Dates: start: 20141113, end: 20141113
  4. TACHIPIRINA [Suspect]
     Active Substance: ACETAMINOPHEN
     Indication: INTENTIONAL SELF-INJURY
     Dosage: 8 DF, ONCE/SINGLE
     Route: 048
     Dates: start: 20141113, end: 20141113
  5. ACTIGRIP [Suspect]
     Active Substance: ACETAMINOPHEN\PSEUDOEPHEDRINE HYDROCHLORIDE\TRIPROLIDINE HYDROCHLORIDE
     Indication: INTENTIONAL SELF-INJURY
     Dosage: 6 DF, ONCE/SINGLE
     Route: 048
     Dates: start: 20141113, end: 20141113
  6. SPASMEX [Suspect]
     Active Substance: TROSPIUM CHLORIDE
     Indication: INTENTIONAL SELF-INJURY
     Dosage: 5 DF, ONCE/SINGLE
     Route: 048
     Dates: start: 20141113, end: 20141113
  7. BUSCOPAN [Suspect]
     Active Substance: BUTYLSCOPOLAMINE BROMIDE
     Indication: INTENTIONAL SELF-INJURY
     Dosage: 6 DF, ONCE/SINGLE
     Route: 048
     Dates: start: 20141113, end: 20141113

REACTIONS (2)
  - Drug abuse [Unknown]
  - Intentional self-injury [Unknown]

NARRATIVE: CASE EVENT DATE: 20141113
